FAERS Safety Report 5297036-8 (Version None)
Quarter: 2007Q1

REPORT INFORMATION
  Report Type: 
  Country: None (occurrence: None)
  Receive Date: 20070201
  Receipt Date: 20061003
  Transmission Date: 20070707
  Serious: No
  Sender: FDA-Public Use
  Company Number: 2006PV022437

PATIENT
  Age: 54 Year
  Sex: Female
  Weight: 86.1834 kg

DRUGS (9)
  1. BYETTA [Suspect]
     Indication: BLOOD GLUCOSE ABNORMAL
     Dosage: 5 MCG; 10 MCG; BID; SC
     Route: 058
     Dates: start: 20060829, end: 20060901
  2. BYETTA [Suspect]
     Indication: WEIGHT DECREASED
     Dosage: 5 MCG; 10 MCG; BID; SC
     Route: 058
     Dates: start: 20060829, end: 20060901
  3. BYETTA [Suspect]
     Indication: BLOOD GLUCOSE ABNORMAL
     Dosage: 5 MCG; 10 MCG; BID; SC
     Route: 058
     Dates: start: 20060829, end: 20061003
  4. BYETTA [Suspect]
     Indication: WEIGHT DECREASED
     Dosage: 5 MCG; 10 MCG; BID; SC
     Route: 058
     Dates: start: 20060829, end: 20061003
  5. BYETTA [Suspect]
     Indication: BLOOD GLUCOSE ABNORMAL
     Dosage: 5 MCG; 10 MCG; BID; SC
     Route: 058
     Dates: start: 20060901, end: 20061022
  6. BYETTA [Suspect]
     Indication: WEIGHT DECREASED
     Dosage: 5 MCG; 10 MCG; BID; SC
     Route: 058
     Dates: start: 20060901, end: 20061022
  7. THYROID MEDICATION NOS [Concomitant]
  8. SYNTHROID [Concomitant]
  9. CYTOMEL [Concomitant]

REACTIONS (4)
  - ABDOMINAL PAIN [None]
  - DECREASED APPETITE [None]
  - DIARRHOEA [None]
  - WEIGHT DECREASED [None]
